FAERS Safety Report 15396243 (Version 1)
Quarter: 2018Q3

REPORT INFORMATION
  Report Type: Other
  Country: US (occurrence: US)
  Receive Date: 20180918
  Receipt Date: 20180918
  Transmission Date: 20181010
  Serious: No
  Sender: FDA-Public Use
  Company Number: US-LEADIANT BIOSCIENCES INC-2018STPI000026

PATIENT
  Age: 57 Year
  Sex: Female

DRUGS (2)
  1. MATULANE [Suspect]
     Active Substance: PROCARBAZINE HYDROCHLORIDE
     Indication: BRAIN NEOPLASM MALIGNANT
     Dosage: 150 MG QD FOR 10 DAYS OF EACH CYCLE
     Dates: start: 20170804
  2. LOMUSTINE. [Concomitant]
     Active Substance: LOMUSTINE
     Indication: BRAIN NEOPLASM MALIGNANT

REACTIONS (7)
  - Constipation [Unknown]
  - White blood cell disorder [Unknown]
  - Red blood cell abnormality [Unknown]
  - Diarrhoea [Unknown]
  - Skin ulcer [Unknown]
  - Weight decreased [Unknown]
  - Stomatitis [Unknown]

NARRATIVE: CASE EVENT DATE: 201712
